FAERS Safety Report 4631170-8 (Version None)
Quarter: 2005Q2

REPORT INFORMATION
  Report Type: 
  Country: None (occurrence: None)
  Receive Date: 20050406
  Receipt Date: 20050322
  Transmission Date: 20051028
  Serious: Yes (Hospitalization)
  Sender: FDA-Public Use
  Company Number: 206773

PATIENT
  Age: 61 Year
  Sex: Female
  Weight: 68.0396 kg

DRUGS (4)
  1. AVONEX [Suspect]
     Indication: MULTIPLE SCLEROSIS
     Dosage: 30 UG QW IM; 30 UG QW IM
     Route: 030
     Dates: start: 19960101, end: 20040401
  2. AVONEX [Suspect]
     Indication: MULTIPLE SCLEROSIS
     Dosage: 30 UG QW IM; 30 UG QW IM
     Route: 030
     Dates: start: 20040401
  3. CHOLESTEROL MEDICATION (NOS) [Concomitant]
  4. BLOOD PRESSURE MEDICATION(NOS) [Concomitant]

REACTIONS (7)
  - BALANCE DISORDER [None]
  - CORONARY ARTERY OCCLUSION [None]
  - FALL [None]
  - JOINT SPRAIN [None]
  - LOWER LIMB FRACTURE [None]
  - MULTIPLE SCLEROSIS [None]
  - TENDON INJURY [None]
